FAERS Safety Report 16021230 (Version 2)
Quarter: 2019Q1

REPORT INFORMATION
  Report Type: Spontaneous
  Country: CA (occurrence: CA)
  Receive Date: 20190301
  Receipt Date: 20190316
  Transmission Date: 20190418
  Serious: Yes (Hospitalization, Other)
  Sender: FDA-Public Use
  Company Number: CA-AUROBINDO-AUR-APL-2019-010390

PATIENT

DRUGS (45)
  1. MAGNESIUM HYDROXIDE. [Concomitant]
     Active Substance: MAGNESIUM HYDROXIDE
     Indication: CONSTIPATION
     Dosage: 311 MILLIGRAM
     Route: 065
  2. CARBAMAZEPINE. [Suspect]
     Active Substance: CARBAMAZEPINE
     Indication: SEIZURE
     Dosage: 100 MILLIGRAM, ONCE A DAY
     Route: 065
  3. AMLODIPINE [Concomitant]
     Active Substance: AMLODIPINE BESYLATE
     Indication: HYPERTENSION
  4. AMLODIPINE [Concomitant]
     Active Substance: AMLODIPINE BESYLATE
     Indication: ANGINA PECTORIS
  5. ACEBUTOLOL [Concomitant]
     Active Substance: ACEBUTOLOL
     Indication: HYPERTENSION
     Dosage: 240 MILLIGRAM, ONCE A DAY
     Route: 065
  6. LEVOFLOXACIN. [Concomitant]
     Active Substance: LEVOFLOXACIN
     Indication: URINARY TRACT INFECTION
     Dosage: 250 MILLIGRAM, ONCE A DAY
     Route: 065
  7. NITROGLYCERIN. [Concomitant]
     Active Substance: NITROGLYCERIN
     Indication: CORONARY ARTERY DISEASE
     Dosage: UNK
     Route: 062
  8. NITROGLYCERIN. [Concomitant]
     Active Substance: NITROGLYCERIN
     Dosage: 0.4 MILLIGRAM
     Route: 048
  9. SALBUTAMOL [Concomitant]
     Active Substance: ALBUTEROL
     Indication: PRODUCT USED FOR UNKNOWN INDICATION
     Dosage: 100 MICROGRAM
     Route: 065
  10. ACETYLSALICYLIC ACID [Concomitant]
     Active Substance: ASPIRIN
     Dosage: 200 MILLIGRAM, TWO TIMES A DAY
     Route: 065
  11. FUROSEMIDE. [Suspect]
     Active Substance: FUROSEMIDE
     Indication: OEDEMA
     Dosage: 10 MILLIGRAM, ONCE A DAY
     Route: 065
  12. BISACODYL. [Concomitant]
     Active Substance: BISACODYL
     Indication: CONSTIPATION
     Dosage: UNK
     Route: 065
  13. DIPYRIDAMOLE. [Concomitant]
     Active Substance: DIPYRIDAMOLE
     Dosage: 25 MILLIGRAM, TWO TIMES A DAY
     Route: 065
  14. LEVOTHYROXINE. [Concomitant]
     Active Substance: LEVOTHYROXINE
     Indication: THYROID DISORDER
     Dosage: 0.088 MILLIGRAM, ONCE A DAY
     Route: 065
  15. TIOTROPIUM [Concomitant]
     Active Substance: TIOTROPIUM
     Indication: ASTHMA
  16. VACCINIUM MACROCARPON [Concomitant]
     Active Substance: CRANBERRY
     Indication: BLADDER ABLATION
     Dosage: 500 MILLIGRAM
     Route: 065
  17. CARBAMAZEPINE. [Suspect]
     Active Substance: CARBAMAZEPINE
     Dosage: 10 MILLIGRAM, ONCE A DAY
     Route: 065
  18. OXAZEPAM. [Suspect]
     Active Substance: OXAZEPAM
     Indication: INSOMNIA
     Dosage: 15 MILLIGRAM
     Route: 048
  19. ACEBUTOLOL [Concomitant]
     Active Substance: ACEBUTOLOL
     Indication: CORONARY ARTERY DISEASE
     Dosage: 200 MILLIGRAM, TWO TIMES A DAY
     Route: 065
  20. ACETAMINOPHEN. [Concomitant]
     Active Substance: ACETAMINOPHEN
     Indication: FIBROMYALGIA
     Dosage: 650 MILLIGRAM
     Route: 065
  21. LEVOTHYROXINE. [Concomitant]
     Active Substance: LEVOTHYROXINE
     Indication: POST PROCEDURAL HYPOTHYROIDISM
  22. CYCLOBENZAPRINE. [Suspect]
     Active Substance: CYCLOBENZAPRINE
     Dosage: 5 MILLIGRAM, 3 TIMES A DAY
     Route: 048
  23. TIOTROPIUM [Concomitant]
     Active Substance: TIOTROPIUM
     Indication: CHRONIC OBSTRUCTIVE PULMONARY DISEASE
  24. AMITRIPTYLINE [Suspect]
     Active Substance: AMITRIPTYLINE
     Indication: INSOMNIA
     Dosage: 75 MILLIGRAM
     Route: 065
  25. DILTIAZEM. [Suspect]
     Active Substance: DILTIAZEM
     Indication: CORONARY ARTERY DISEASE
     Dosage: 360 MILLIGRAM, ONCE A DAY
     Route: 048
  26. DILTIAZEM. [Suspect]
     Active Substance: DILTIAZEM
     Indication: ANGINA PECTORIS
  27. FUROSEMIDE. [Suspect]
     Active Substance: FUROSEMIDE
     Dosage: 20 MILLIGRAM, ONCE A DAY
     Route: 065
  28. ACEBUTOLOL [Concomitant]
     Active Substance: ACEBUTOLOL
     Indication: ANGINA PECTORIS
  29. GALANTAMINE. [Concomitant]
     Active Substance: GALANTAMINE
     Indication: DEMENTIA
     Dosage: 16 MILLIGRAM, ONCE A DAY
     Route: 065
  30. LACTULOSE. [Concomitant]
     Active Substance: LACTULOSE
     Indication: CONSTIPATION
     Dosage: 15 MILLILITER, ONCE A DAY
     Route: 048
  31. TIOTROPIUM [Concomitant]
     Active Substance: TIOTROPIUM
     Indication: PRODUCT USED FOR UNKNOWN INDICATION
     Dosage: 18 MICROGRAM, ONCE A DAY
     Route: 065
  32. ACETYLSALICYLIC ACID [Concomitant]
     Active Substance: ASPIRIN
     Indication: CEREBROVASCULAR ACCIDENT
     Dosage: 25 MILLIGRAM, TWO TIMES A DAY
     Route: 065
  33. CYCLOBENZAPRINE. [Suspect]
     Active Substance: CYCLOBENZAPRINE
     Indication: FIBROMYALGIA
     Dosage: 5 MILLIGRAM, FOUR TIMES/DAY
     Route: 048
  34. CYCLOBENZAPRINE. [Suspect]
     Active Substance: CYCLOBENZAPRINE
     Dosage: 5 MILLIGRAM, DAILY
     Route: 065
  35. CARBAMAZEPINE. [Suspect]
     Active Substance: CARBAMAZEPINE
     Dosage: 200 MILLIGRAM, TWO TIMES A DAY
     Route: 065
  36. DILTIAZEM. [Suspect]
     Active Substance: DILTIAZEM
     Indication: HYPERTENSION
     Dosage: 240 MILLIGRAM, ONCE A DAY
     Route: 065
  37. FUROSEMIDE. [Suspect]
     Active Substance: FUROSEMIDE
     Dosage: 40 MILLIGRAM, ONCE A DAY
     Route: 048
  38. AMLODIPINE [Concomitant]
     Active Substance: AMLODIPINE BESYLATE
     Indication: CORONARY ARTERY DISEASE
     Dosage: 5 MILLIGRAM, ONCE A DAY
     Route: 065
  39. GLUCOSAMINE [Concomitant]
     Active Substance: GLUCOSAMINE
     Indication: ARTHRITIS
     Dosage: UNK
     Route: 065
  40. QUINAPRIL. [Concomitant]
     Active Substance: QUINAPRIL
     Indication: CORONARY ARTERY DISEASE
     Dosage: 40 MILLIGRAM, ONCE A DAY
     Route: 065
  41. MORPHINE [Suspect]
     Active Substance: MORPHINE
     Indication: FIBROMYALGIA
     Dosage: 10 MILLIGRAM
     Route: 065
  42. DIPYRIDAMOLE. [Concomitant]
     Active Substance: DIPYRIDAMOLE
     Indication: CEREBROVASCULAR ACCIDENT
     Dosage: 200 MILLIGRAM, TWO TIMES A DAY
     Route: 065
  43. GALANTAMINE. [Concomitant]
     Active Substance: GALANTAMINE
     Indication: ARTHRITIS
     Dosage: 500 MILLIGRAM, TWO TIMES A DAY
     Route: 065
  44. OMEPRAZOLE. [Concomitant]
     Active Substance: OMEPRAZOLE
     Indication: DUODENAL ULCER
     Dosage: 20 MILLIGRAM, ONCE A DAY
     Route: 065
  45. ROSUVASTATIN. [Concomitant]
     Active Substance: ROSUVASTATIN
     Indication: CEREBROVASCULAR ACCIDENT
     Dosage: 20 MILLIGRAM, TWO TIMES A DAY
     Route: 065

REACTIONS (6)
  - Dementia [Recovered/Resolved]
  - Constipation [Recovered/Resolved]
  - Creatinine renal clearance decreased [Recovered/Resolved]
  - Cognitive disorder [Recovered/Resolved]
  - Blood calcium decreased [Recovered/Resolved]
  - Sedation complication [Recovered/Resolved]
